FAERS Safety Report 20648766 (Version 5)
Quarter: 2022Q3

REPORT INFORMATION
  Report Type: Spontaneous
  Country: US (occurrence: US)
  Receive Date: 20220329
  Receipt Date: 20220822
  Transmission Date: 20221027
  Serious: No
  Sender: FDA-Public Use
  Company Number: US-PFIZER INC-202200342785

PATIENT
  Age: 9 Year
  Sex: Male
  Weight: 18.23 kg

DRUGS (4)
  1. GENOTROPIN [Suspect]
     Active Substance: SOMATROPIN
     Indication: Renal failure
     Dosage: 0.7 MG, 1X/DAY (NIGHTLY)
     Route: 058
     Dates: start: 20220217
  2. GENOTROPIN [Suspect]
     Active Substance: SOMATROPIN
     Indication: Growth hormone deficiency
     Dosage: 0.7 MG, DAILY (0.7 MG INJECTION DAILY)
     Dates: start: 202202
  3. GENOTROPIN [Suspect]
     Active Substance: SOMATROPIN
     Indication: Renal disorder
     Dosage: UNK
  4. LEVOTHYROXINE [Concomitant]
     Active Substance: LEVOTHYROXINE
     Dosage: UNK

REACTIONS (4)
  - Device leakage [Unknown]
  - Poor quality device used [Unknown]
  - Wrong technique in device usage process [Unknown]
  - Drug dose omission by device [Unknown]

NARRATIVE: CASE EVENT DATE: 20220225
